FAERS Safety Report 7277681-0 (Version None)
Quarter: 2011Q1

REPORT INFORMATION
  Report Type: 
  Country: None (occurrence: None)
  Receive Date: 20110207
  Receipt Date: 20110201
  Transmission Date: 20110831
  Serious: Yes (Other)
  Sender: FDA-Public Use
  Company Number: US-PFIZER INC-2011023567

PATIENT
  Sex: Female
  Weight: 82.54 kg

DRUGS (7)
  1. GEODON [Suspect]
     Indication: PSYCHOTIC DISORDER
     Dosage: 80 MG, 1X/DAY
     Route: 048
     Dates: start: 20100601, end: 20100101
  2. PROZAC [Concomitant]
     Indication: DEPRESSION
  3. LAMICTAL [Concomitant]
     Indication: DEPRESSION
  4. GEODON [Suspect]
     Indication: POST-TRAUMATIC STRESS DISORDER
     Dosage: 80 MG, 2X/DAY
     Route: 048
     Dates: start: 20100101, end: 20101227
  5. LAMICTAL [Concomitant]
     Indication: BIPOLAR DISORDER
     Dosage: UNK
     Dates: start: 20050101
  6. PROZAC [Concomitant]
     Indication: BIPOLAR DISORDER
     Dosage: UNK
     Dates: start: 20050101
  7. LITHIUM [Concomitant]
     Dosage: UNK
     Dates: start: 20050101

REACTIONS (5)
  - ACNE [None]
  - WEIGHT INCREASED [None]
  - PARAESTHESIA [None]
  - CHEST PAIN [None]
  - AXILLARY PAIN [None]
